FAERS Safety Report 16158821 (Version 3)
Quarter: 2022Q1

REPORT INFORMATION
  Report Type: Spontaneous
  Country: ZA (occurrence: ZA)
  Receive Date: 20190404
  Receipt Date: 20220311
  Transmission Date: 20220424
  Serious: Yes (Other)
  Sender: FDA-Public Use
  Company Number: ZA-SA-2019SA087426

PATIENT
  Age: 56 Year
  Sex: Female

DRUGS (6)
  1. CHLOROQUINE [Suspect]
     Active Substance: CHLOROQUINE
     Dosage: UNK
     Dates: start: 20151014, end: 20151014
  2. ARAVA [Suspect]
     Active Substance: LEFLUNOMIDE
     Dosage: UNK
     Dates: start: 20151014
  3. LORNOXICAM [Suspect]
     Active Substance: LORNOXICAM
     Dosage: UNK
     Dates: start: 20140219
  4. VIMOVO [Suspect]
     Active Substance: ESOMEPRAZOLE MAGNESIUM\NAPROXEN
     Dosage: UNK
     Dates: start: 20140219
  5. MELOXICAM [Suspect]
     Active Substance: MELOXICAM
     Dosage: UNK
     Dates: start: 20140208
  6. METHOTREXATE [Concomitant]
     Active Substance: METHOTREXATE
     Dosage: UNK
     Dates: start: 20140207, end: 20150417

REACTIONS (2)
  - Ankylosing spondylitis [Unknown]
  - HLA-B*27 positive [Unknown]
